FAERS Safety Report 9753094 (Version 1)
Quarter: 2013Q4

REPORT INFORMATION
  Report Type: Spontaneous
  Country: US (occurrence: US)
  Receive Date: 20131213
  Receipt Date: 20131213
  Transmission Date: 20140711
  Serious: Yes (Other)
  Sender: FDA-Public Use
  Company Number: US-GILEAD-2010-0026272

PATIENT
  Age: 59 Year
  Sex: Female

DRUGS (6)
  1. LETAIRIS [Suspect]
     Indication: PULMONARY ARTERIAL HYPERTENSION
     Route: 048
     Dates: start: 20080522
  2. REVATIO [Concomitant]
  3. NORVASC [Concomitant]
  4. COUMADIN [Concomitant]
  5. TRIAMTERENE/HCTZ [Concomitant]
  6. FLONASE [Concomitant]

REACTIONS (1)
  - Anaemia [Recovering/Resolving]
